FAERS Safety Report 14575689 (Version 1)
Quarter: 2018Q1

REPORT INFORMATION
  Report Type: Spontaneous
  Country: SE (occurrence: SE)
  Receive Date: 20180227
  Receipt Date: 20180227
  Transmission Date: 20180509
  Serious: Yes (Other)
  Sender: FDA-Public Use
  Company Number: SE-CIPLA LTD.-2018SE07747

PATIENT

DRUGS (1)
  1. ATORVASTATIN [Suspect]
     Active Substance: ATORVASTATIN
     Indication: PRODUCT USED FOR UNKNOWN INDICATION
     Dosage: 20 MG, UNK
     Route: 065

REACTIONS (8)
  - Fatigue [Unknown]
  - Hypoacusis [Unknown]
  - Dyspnoea [Unknown]
  - Chest discomfort [Unknown]
  - Diarrhoea [Unknown]
  - Myalgia [Unknown]
  - Poor peripheral circulation [Unknown]
  - Headache [Unknown]
